FAERS Safety Report 7635701-5 (Version None)
Quarter: 2011Q3

REPORT INFORMATION
  Report Type: 
  Country: None (occurrence: None)
  Receive Date: 20110726
  Receipt Date: 20110715
  Transmission Date: 20111222
  Serious: Yes (Hospitalization, Other)
  Sender: FDA-Public Use
  Company Number: US-AMGEN-USASP2011015554

PATIENT
  Age: 78 Year
  Sex: Female

DRUGS (3)
  1. HUMIRA [Concomitant]
  2. ENBREL [Suspect]
     Indication: PSORIATIC ARTHROPATHY
     Dosage: 50 MG, QWK
     Dates: start: 19980101
  3. ENBREL [Suspect]
     Indication: PSORIASIS

REACTIONS (7)
  - PSORIATIC ARTHROPATHY [None]
  - INJECTION SITE PAIN [None]
  - SPINAL FRACTURE [None]
  - URINARY TRACT INFECTION [None]
  - FALL [None]
  - WHITE BLOOD CELL COUNT DECREASED [None]
  - NORMAL PRESSURE HYDROCEPHALUS [None]
